FAERS Safety Report 8874031 (Version 2)
Quarter: 2014Q3

REPORT INFORMATION
  Report Type: Spontaneous
  Country: US (occurrence: US)
  Receive Date: 20121030
  Receipt Date: 20140808
  Transmission Date: 20150326
  Serious: Yes (Other)
  Sender: FDA-Public Use
  Company Number: CHPA2012US022198

PATIENT
  Age: 71 Year
  Sex: Female

DRUGS (7)
  1. TRIAMINIC-12 [Suspect]
     Active Substance: CHLORPHENIRAMINE MALEATE\PHENYLPROPANOLAMINE HYDROCHLORIDE
     Indication: NASOPHARYNGITIS
     Dosage: 1 TSP, TID AS NEEDED
     Route: 048
  2. VITAMIN B12 [Concomitant]
     Active Substance: CYANOCOBALAMIN
     Dosage: 25-20 MG, TWICE PER WEEK
  3. VITAMIN C [Concomitant]
     Active Substance: ASCORBIC ACID
     Dosage: 1 GEL CAP, 1X WEEK
  4. COQ10 [Concomitant]
     Active Substance: UBIDECARENONE
     Dosage: 100 MG DAILY
     Dates: start: 2009
  5. TRIAMINIC-12 [Suspect]
     Active Substance: CHLORPHENIRAMINE MALEATE\PHENYLPROPANOLAMINE HYDROCHLORIDE
     Indication: HYPERSENSITIVITY
  6. VITAMIN A [Concomitant]
     Active Substance: VITAMIN A
     Dosage: 99 MG 1 PILL DAILY
  7. COD-LIVER OIL [Concomitant]
     Active Substance: FISH OIL
     Dosage: 1 DF, QD
     Dates: start: 1941

REACTIONS (9)
  - Breast cancer [Recovered/Resolved]
  - Eating disorder [Recovered/Resolved]
  - Insomnia [Recovered/Resolved]
  - Incorrect drug administration duration [Unknown]
  - Pneumonia [Recovered/Resolved]
  - Hypertension [Not Recovered/Not Resolved]
  - Oedema peripheral [Not Recovered/Not Resolved]
  - Lymphoedema [Not Recovered/Not Resolved]
  - Incorrect dose administered [Unknown]

NARRATIVE: CASE EVENT DATE: 1967
